FAERS Safety Report 12616507 (Version 1)
Quarter: 2016Q3

REPORT INFORMATION
  Report Type: Report from Study
  Country: BR (occurrence: BR)
  Receive Date: 20160802
  Receipt Date: 20160802
  Transmission Date: 20161109
  Serious: Yes (Other)
  Sender: FDA-Public Use
  Company Number: PHHY2016BR104481

PATIENT
  Sex: Female

DRUGS (2)
  1. FORASEQ [Suspect]
     Active Substance: BUDESONIDE\FORMOTEROL FUMARATE
     Indication: ASTHMA
     Dosage: (200 UG)
     Route: 055
  2. FORASEQ [Suspect]
     Active Substance: BUDESONIDE\FORMOTEROL FUMARATE
     Dosage: (400 UG)
     Route: 055

REACTIONS (9)
  - Fall [Unknown]
  - Spinal disorder [Unknown]
  - Head injury [Unknown]
  - Asthma [Unknown]
  - Pain [Unknown]
  - Malaise [Unknown]
  - Movement disorder [Unknown]
  - Accident [Unknown]
  - Spinal fracture [Unknown]
